FAERS Safety Report 10327840 (Version 2)
Quarter: 2017Q3

REPORT INFORMATION
  Report Type: Spontaneous
  Country: US (occurrence: US)
  Receive Date: 20140721
  Receipt Date: 20170713
  Transmission Date: 20171127
  Serious: No
  Sender: FDA-Public Use
  Company Number: US-SA-2014SA060257

PATIENT
  Age: 68 Year
  Sex: Female

DRUGS (6)
  1. MURO 128 [Concomitant]
     Active Substance: SODIUM CHLORIDE
     Dosage: STRENGTH: 5%
     Route: 047
     Dates: start: 20130918
  2. TOVIAZ [Concomitant]
     Active Substance: FESOTERODINE FUMARATE
     Route: 048
  3. ASPIRIN. [Concomitant]
     Active Substance: ASPIRIN
     Route: 048
  4. ATENOLOL. [Concomitant]
     Active Substance: ATENOLOL
     Route: 048
     Dates: start: 20120926
  5. ZESTRIL [Concomitant]
     Active Substance: LISINOPRIL
     Dosage: BY MOUTH
     Route: 048
     Dates: start: 20130625
  6. LOZOL [Suspect]
     Active Substance: INDAPAMIDE
     Indication: PRODUCT USED FOR UNKNOWN INDICATION
     Route: 065

REACTIONS (2)
  - Drug intolerance [Unknown]
  - Multiple allergies [Unknown]
